FAERS Safety Report 19230332 (Version 1)
Quarter: 2021Q2

REPORT INFORMATION
  Report Type: Spontaneous
  Country: GB (occurrence: GB)
  Receive Date: 20210507
  Receipt Date: 20210507
  Transmission Date: 20210717
  Serious: Yes (Other)
  Sender: FDA-Public Use
  Company Number: GB-TEVA-2021-GB-1908222

PATIENT
  Age: 73 Year
  Sex: Male
  Weight: 67 kg

DRUGS (3)
  1. FEXOFENADINE [Suspect]
     Active Substance: FEXOFENADINE HYDROCHLORIDE
     Route: 065
  2. NEOMYCIN. [Suspect]
     Active Substance: NEOMYCIN
  3. DEXAMETASONE [Concomitant]
     Active Substance: DEXAMETHASONE
     Indication: UVEITIS
     Dates: start: 201204

REACTIONS (2)
  - Rhinalgia [Unknown]
  - Nasal discomfort [Not Recovered/Not Resolved]

NARRATIVE: CASE EVENT DATE: 20210407
